FAERS Safety Report 25911119 (Version 1)
Quarter: 2025Q4

REPORT INFORMATION
  Report Type: Spontaneous
  Country: AU (occurrence: AU)
  Receive Date: 20251013
  Receipt Date: 20251013
  Transmission Date: 20260118
  Serious: Yes (Other)
  Sender: LUPIN
  Company Number: AU-GENERIC HEALTH PTY. LTD.-2025-09097

PATIENT
  Age: 74 Year

DRUGS (1)
  1. LEVOTHYROXINE SODIUM [Suspect]
     Active Substance: LEVOTHYROXINE SODIUM
     Indication: Hypothyroidism
     Dosage: 150 MCG, QD
     Route: 065

REACTIONS (5)
  - Autoimmune thyroiditis [Unknown]
  - Arthritis [Unknown]
  - Condition aggravated [Not Recovered/Not Resolved]
  - Drug ineffective [Unknown]
  - Wrong technique in product usage process [Unknown]
